FAERS Safety Report 5602559-5 (Version None)
Quarter: 2008Q1

REPORT INFORMATION
  Report Type: 
  Country: None (occurrence: None)
  Receive Date: 20080125
  Receipt Date: 20080116
  Transmission Date: 20080703
  Serious: Yes (Death, Life-Threatening, Hospitalization, Disabling)
  Sender: FDA-Public Use
  Company Number: US-MERCK-0606USA04565

PATIENT
  Age: 58 Year
  Sex: Female
  Weight: 37 kg

DRUGS (17)
  1. VYTORIN [Suspect]
     Indication: BLOOD CHOLESTEROL
     Route: 048
     Dates: start: 20060101, end: 20060605
  2. [THERAPY UNSPECIFIED] [Concomitant]
     Route: 065
  3. PRAVACHOL [Concomitant]
     Route: 065
  4. PREDNISONE [Concomitant]
     Route: 065
  5. PLAVIX [Concomitant]
     Route: 065
  6. ELAVIL [Concomitant]
     Route: 065
  7. VALIUM [Concomitant]
     Route: 065
  8. ACTONEL [Concomitant]
     Route: 065
  9. LASIX [Concomitant]
     Route: 065
  10. DARVOCET-N 100 [Concomitant]
     Route: 048
  11. LORCET [Concomitant]
     Route: 048
  12. NEXIUM [Concomitant]
     Route: 065
  13. HEPARIN [Concomitant]
     Route: 065
  14. ALBUTEROL [Concomitant]
     Route: 065
  15. FENTANYL [Concomitant]
     Route: 051
  16. ATIVAN [Concomitant]
     Route: 065
  17. POTASSIUM CHLORIDE [Concomitant]
     Route: 065

REACTIONS (6)
  - MYOSITIS [None]
  - PNEUMOCOCCAL SEPSIS [None]
  - PNEUMONIA [None]
  - RENAL FAILURE ACUTE [None]
  - RESPIRATORY FAILURE [None]
  - RHABDOMYOLYSIS [None]
